FAERS Safety Report 6102942-8 (Version None)
Quarter: 2009Q1

REPORT INFORMATION
  Report Type: 
  Country: None (occurrence: None)
  Receive Date: 20090305
  Receipt Date: 20090217
  Transmission Date: 20090719
  Serious: Yes (Hospitalization)
  Sender: FDA-Public Use
  Company Number: PHHY2008MX01129

PATIENT
  Age: 56 Year
  Sex: Female

DRUGS (1)
  1. DIOVAN HCT [Suspect]
     Indication: HYPERTENSION
     Dosage: 1 TABLET PER DAY (160/25 MG)
     Route: 048
     Dates: start: 20070901, end: 20071201

REACTIONS (4)
  - CATHETER PLACEMENT [None]
  - KIDNEY INFECTION [None]
  - RENAL FAILURE [None]
  - SURGERY [None]
